FAERS Safety Report 26151417 (Version 1)
Quarter: 2025Q4

REPORT INFORMATION
  Report Type: Spontaneous
  Country: US (occurrence: None)
  Receive Date: 20251212
  Receipt Date: 20251212
  Transmission Date: 20260118
  Serious: Yes (Disabling)
  Sender: FDA-CTU
  Company Number: None

PATIENT
  Age: 45 Year
  Sex: Male
  Weight: 114.75 kg

DRUGS (2)
  1. LEVOCETIRIZINE [Suspect]
     Active Substance: LEVOCETIRIZINE
     Indication: Seasonal allergy
     Dosage: FREQUENCY : DAILY;
     Route: 048
  2. LEVOCETIRIZINE [Suspect]
     Active Substance: LEVOCETIRIZINE
     Indication: Multiple allergies

REACTIONS (3)
  - Pruritus [None]
  - Rash [None]
  - Scar [None]

NARRATIVE: CASE EVENT DATE: 20140701
